FAERS Safety Report 8926653 (Version 1)
Quarter: 2012Q4

REPORT INFORMATION
  Report Type: 
  Country: US (occurrence: US)
  Receive Date: 20121127
  Receipt Date: 20121127
  Transmission Date: 20130627
  Serious: Yes (Other)
  Sender: FDA-Public Use
  Company Number: US-PFIZER INC-2012292173

PATIENT
  Sex: Female

DRUGS (2)
  1. PREMPRO [Suspect]
     Dosage: 1 DF, 1x/day
  2. PREMPHASE [Suspect]
     Dosage: 1 DF, 1x/day

REACTIONS (3)
  - Breast mass [Unknown]
  - Hot flush [Unknown]
  - Hyperhidrosis [Unknown]
